FAERS Safety Report 9434216 (Version 1)
Quarter: 2013Q3

REPORT INFORMATION
  Report Type: Spontaneous
  Country: US (occurrence: None)
  Receive Date: 20130730
  Receipt Date: 20130730
  Transmission Date: 20140515
  Serious: Yes (Other)
  Sender: FDA-Public Use
  Company Number: None

PATIENT
  Age: 79 Year
  Sex: Female
  Weight: 38 kg

DRUGS (7)
  1. HYDROGEN PEROXIDE [Suspect]
     Route: 048
     Dates: start: 201306, end: 201306
  2. CELEBREX [Concomitant]
  3. COSOPT [Concomitant]
  4. LUMIGAN DROPS [Concomitant]
  5. SPIRIVA [Concomitant]
  6. SYMBICORT [Concomitant]
  7. VITAMINS [Concomitant]

REACTIONS (4)
  - Stomatitis [None]
  - Rash [None]
  - Swelling [None]
  - Lip swelling [None]
